FAERS Safety Report 7392825-8 (Version None)
Quarter: 2011Q2

REPORT INFORMATION
  Report Type: 
  Country: None (occurrence: None)
  Receive Date: 20110404
  Receipt Date: 20110321
  Transmission Date: 20111010
  Serious: Yes (Death, Hospitalization)
  Sender: FDA-Public Use
  Company Number: CA-ACTELION-A-US2010-38666

PATIENT

DRUGS (15)
  1. LASIX [Concomitant]
  2. METOPROLOL TARTRATE [Concomitant]
  3. VERAPAMIL [Concomitant]
  4. CAPTOPRIL [Concomitant]
  5. TRACLEER [Suspect]
     Dosage: 62.5 MG, BID
     Route: 048
     Dates: start: 20070701, end: 20070801
  6. COLECALCIFEROL [Concomitant]
  7. TRACLEER [Suspect]
     Indication: PULMONARY HYPERTENSION
     Dosage: 125 MG, BID
     Route: 048
     Dates: start: 20070801, end: 20100731
  8. COUMADIN [Suspect]
  9. ATORVASTATIN CALCIUM [Concomitant]
  10. PLAVIX [Suspect]
  11. ASPIRIN [Suspect]
  12. DIGOXIN [Concomitant]
  13. PREDNISONE [Concomitant]
  14. CALCIUM CARBONATE [Concomitant]
  15. PARIET [Concomitant]

REACTIONS (1)
  - GASTROINTESTINAL HAEMORRHAGE [None]
